FAERS Safety Report 6779416-4 (Version None)
Quarter: 2010Q2

REPORT INFORMATION
  Report Type: 
  Country: None (occurrence: None)
  Receive Date: 20100618
  Receipt Date: 20100616
  Transmission Date: 20101027
  Serious: Yes (Death)
  Sender: FDA-Public Use
  Company Number: PHHY2010IN39351

PATIENT
  Age: 90 Year
  Sex: Female

DRUGS (1)
  1. FEMARA [Suspect]
     Dosage: 1 DF, QD

REACTIONS (1)
  - DEATH [None]
